FAERS Safety Report 9617495 (Version 1)
Quarter: 2013Q4

REPORT INFORMATION
  Report Type: Spontaneous
  Country: US (occurrence: US)
  Receive Date: 20131011
  Receipt Date: 20131011
  Transmission Date: 20140711
  Serious: Yes (Hospitalization)
  Sender: FDA-Public Use
  Company Number: US-GLAXOSMITHKLINE-A1044739A

PATIENT
  Age: 50 Year
  Sex: Female

DRUGS (4)
  1. AMERGE [Suspect]
     Indication: MIGRAINE
     Dosage: 2.5MG AS REQUIRED
     Route: 048
     Dates: start: 20001029, end: 20001029
  2. COZAAR [Concomitant]
  3. ALBUTEROL [Concomitant]
  4. ANTIHYPERTENSIVE [Concomitant]

REACTIONS (4)
  - Myocardial infarction [Recovered/Resolved with Sequelae]
  - Pain in extremity [Recovered/Resolved with Sequelae]
  - Musculoskeletal pain [Unknown]
  - Middle insomnia [Unknown]
